FAERS Safety Report 16916906 (Version 2)
Quarter: 2019Q4

REPORT INFORMATION
  Report Type: Spontaneous
  Country: IT (occurrence: IT)
  Receive Date: 20191015
  Receipt Date: 20191025
  Transmission Date: 20200122
  Serious: Yes (Hospitalization)
  Sender: FDA-Public Use
  Company Number: IT-ROCHE-2438971

PATIENT
  Age: 80 Year
  Sex: Male
  Weight: 94 kg

DRUGS (1)
  1. ATEZOLIZUMAB. [Suspect]
     Active Substance: ATEZOLIZUMAB
     Indication: LUNG NEOPLASM MALIGNANT
     Route: 042
     Dates: start: 20190730, end: 20190820

REACTIONS (3)
  - Hallucination [Recovering/Resolving]
  - Tremor [Recovering/Resolving]
  - Cortisol deficiency [Recovering/Resolving]

NARRATIVE: CASE EVENT DATE: 20190907
